FAERS Safety Report 26167649 (Version 1)
Quarter: 2025Q4

REPORT INFORMATION
  Report Type: Spontaneous
  Country: US (occurrence: US)
  Receive Date: 20251217
  Receipt Date: 20251217
  Transmission Date: 20260117
  Serious: Yes (Hospitalization)
  Sender: PACIRA
  Company Number: US-ORG100016242-2025000117

PATIENT
  Age: 31 Year
  Sex: Male

DRUGS (2)
  1. EXPAREL [Suspect]
     Active Substance: BUPIVACAINE
     Indication: Inguinal hernia repair
     Route: 050
     Dates: start: 20250324, end: 20250324
  2. MARCAINE [Suspect]
     Active Substance: BUPIVACAINE HYDROCHLORIDE
     Indication: Inguinal hernia repair
     Route: 050
     Dates: start: 20250324, end: 20250324

REACTIONS (3)
  - Femoral nerve palsy [Recovered/Resolved]
  - Nerve block [Recovered/Resolved]
  - Product administration error [Recovered/Resolved]

NARRATIVE: CASE EVENT DATE: 20250324
